FAERS Safety Report 7227711-7 (Version None)
Quarter: 2011Q1

REPORT INFORMATION
  Report Type: 
  Country: None (occurrence: None)
  Receive Date: 20110114
  Receipt Date: 20101011
  Transmission Date: 20110831
  Serious: Yes (Hospitalization)
  Sender: FDA-Public Use
  Company Number: PHHY2010US90134

PATIENT
  Sex: Female

DRUGS (1)
  1. EXJADE [Suspect]
     Dosage: 875 MG, QD
     Route: 048

REACTIONS (6)
  - CARDIAC DISORDER [None]
  - OEDEMA [None]
  - DYSPNOEA [None]
  - DIARRHOEA [None]
  - FLUID OVERLOAD [None]
  - ABDOMINAL PAIN [None]
